FAERS Safety Report 8068417-4 (Version None)
Quarter: 2012Q1

REPORT INFORMATION
  Report Type: 
  Country: None (occurrence: None)
  Receive Date: 20120124
  Receipt Date: 20111024
  Transmission Date: 20120608
  Serious: No
  Sender: FDA-Public Use
  Company Number: US-AMGEN-USASP2011055160

PATIENT
  Sex: Female

DRUGS (2)
  1. OS-CAL [Concomitant]
     Dosage: UNK
  2. PROLIA [Suspect]
     Indication: PRODUCT USED FOR UNKNOWN INDICATION
     Dosage: UNK UNK, Q6MO
     Dates: start: 20110101

REACTIONS (2)
  - SKIN CANCER [None]
  - ABDOMINAL PAIN UPPER [None]
